FAERS Safety Report 6193971-7 (Version None)
Quarter: 2009Q2

REPORT INFORMATION
  Report Type: 
  Country: None (occurrence: None)
  Receive Date: 20090518
  Receipt Date: 20090510
  Transmission Date: 20091009
  Serious: Yes (Other)
  Sender: FDA-Public Use
  Company Number: PHHY2009BR18111

PATIENT
  Age: 20 Year
  Sex: Female
  Weight: 48 kg

DRUGS (6)
  1. VOLTAREN [Suspect]
     Dosage: 2 DF, ONCE/SINGLE
     Route: 048
  2. AMOXICILLIN [Suspect]
     Dosage: 1 BOTTLE
  3. DEXCHLORPHENIRAMINE [Suspect]
     Dosage: TWO BOTTLES
  4. DIAZEPAM [Suspect]
     Dosage: 5 TABS
  5. AMBROXOL ACEFYLLINATE [Suspect]
     Dosage: 1 BOTTLE
  6. SULFAMETHOXAZOLE AND TRIMETHOPRIM [Suspect]
     Dosage: 1 BOTTLE

REACTIONS (5)
  - SOMNOLENCE [None]
  - SUICIDE ATTEMPT [None]
  - TACHYCARDIA [None]
  - TREMOR [None]
  - VERTIGO [None]
